FAERS Safety Report 25943928 (Version 1)
Quarter: 2025Q4

REPORT INFORMATION
  Report Type: Report from Study
  Country: US (occurrence: US)
  Receive Date: 20251021
  Receipt Date: 20251021
  Transmission Date: 20260118
  Serious: Yes (Hospitalization, Other)
  Sender: GILEAD
  Company Number: US-GILEAD-2025-0733112

PATIENT
  Age: 67 Year
  Sex: Male

DRUGS (1)
  1. SELADELPAR [Suspect]
     Active Substance: SELADELPAR
     Indication: Product used for unknown indication
     Dosage: LIVDELZI 10MG PO DAILY
     Route: 048

REACTIONS (2)
  - Haematemesis [Recovered/Resolved]
  - Pharyngeal haemorrhage [Recovered/Resolved]

NARRATIVE: CASE EVENT DATE: 20251003
